FAERS Safety Report 18478786 (Version 3)
Quarter: 2020Q4

REPORT INFORMATION
  Report Type: Spontaneous
  Country: US (occurrence: US)
  Receive Date: 20201109
  Receipt Date: 20201117
  Transmission Date: 20210114
  Serious: No
  Sender: FDA-Public Use
  Company Number: US-HORIZON-2020HZN00904

PATIENT
  Age: 33 Year
  Sex: Female
  Weight: 85 kg

DRUGS (12)
  1. TEPEZZA [Suspect]
     Active Substance: TEPROTUMUMAB-TRBW
     Indication: TOXIC GOITRE
     Route: 050
  2. XYZAL [Concomitant]
     Active Substance: LEVOCETIRIZINE DIHYDROCHLORIDE
  3. PREDNISONE. [Concomitant]
     Active Substance: PREDNISONE
  4. MULTIVITAMINS [Concomitant]
     Active Substance: VITAMINS
  5. LOSARTAN- HYDROCHLOROTHIAZIDE [Concomitant]
  6. VITAMIN B COMPLEX [Concomitant]
     Active Substance: CYANOCOBALAMIN\DEXPANTHENOL\NIACINAMIDE\PYRIDOXINE HYDROCHLORIDE\RIBOFLAVIN 5^-PHOSPHATE SODIUM\THIAMINE HYDROCHLORIDE\VITAMIN B COMPLEX
  7. IRON [Concomitant]
     Active Substance: IRON
     Dosage: 159(45)MG TABLET
  8. DIPHENHYDRAMINE HCL [Concomitant]
     Active Substance: DIPHENHYDRAMINE HYDROCHLORIDE
  9. BIOTIN [Concomitant]
     Active Substance: BIOTIN
  10. PROBIOTIC [Concomitant]
     Active Substance: PROBIOTICS NOS
  11. PLAQUENIL [Concomitant]
     Active Substance: HYDROXYCHLOROQUINE SULFATE
  12. MYCOPHENOLATE MOFETIL. [Concomitant]
     Active Substance: MYCOPHENOLATE MOFETIL

REACTIONS (4)
  - Diarrhoea [Unknown]
  - Headache [Recovered/Resolved]
  - Underdose [Recovered/Resolved]
  - Headache [Recovered/Resolved]

NARRATIVE: CASE EVENT DATE: 20201103
